FAERS Safety Report 8648230 (Version 2)
Quarter: 2014Q1

REPORT INFORMATION
  Report Type: Spontaneous
  Country: US (occurrence: None)
  Receive Date: 20120323
  Receipt Date: 20130305
  Transmission Date: 20141002
  Serious: Yes (Hospitalization, Other)
  Sender: FDA-Public Use
  Company Number: 163-21880-11101365

PATIENT
  Age: 75 Year
  Sex: Female
  Weight: 47.17 kg

DRUGS (10)
  1. REVLIMID [Suspect]
     Indication: PLASMA CELL MYELOMA
     Dosage: 5 MG, DAILY FOR 21 DAYS, PO
     Route: 048
     Dates: start: 201108, end: 201110
  2. ACYCLOVIR [Concomitant]
  3. ARMOUR THYROID [Concomitant]
  4. ASA (ACETYLSALICYLIC ACID) [Concomitant]
  5. HYDROCODONE [Concomitant]
  6. FISH OIL [Concomitant]
  7. CALCIUM [Concomitant]
  8. MIRALAX [Concomitant]
  9. SYNTHROID (LEVOTHYROXINE SODIUM) [Concomitant]
  10. OMEPRAZOLE [Concomitant]

REACTIONS (3)
  - Deep vein thrombosis [None]
  - Platelet count decreased [None]
  - Deep vein thrombosis [None]
